FAERS Safety Report 22357147 (Version 1)
Quarter: 2023Q2

REPORT INFORMATION
  Report Type: Spontaneous
  Country: US (occurrence: US)
  Receive Date: 20230524
  Receipt Date: 20230524
  Transmission Date: 20230722
  Serious: Yes (Other)
  Sender: FDA-Public Use
  Company Number: US-MPL-000022

PATIENT
  Age: 50 Year
  Sex: Female
  Weight: 39 kg

DRUGS (3)
  1. LACOSAMIDE [Suspect]
     Active Substance: LACOSAMIDE
     Indication: Seizure prophylaxis
     Route: 065
  2. LACOSAMIDE [Suspect]
     Active Substance: LACOSAMIDE
     Indication: Seizure prophylaxis
     Route: 065
  3. LEVETIRACETAM [Suspect]
     Active Substance: LEVETIRACETAM
     Indication: Seizure prophylaxis
     Route: 065

REACTIONS (16)
  - Cerebral artery stenosis [Unknown]
  - Dysphagia [Unknown]
  - Emotional distress [Recovered/Resolved]
  - Hyperhidrosis [Unknown]
  - Systolic hypertension [Unknown]
  - Sinus tachycardia [Unknown]
  - Change in seizure presentation [Recovered/Resolved]
  - Toxicity to various agents [Unknown]
  - Drug level above therapeutic [Unknown]
  - Somnolence [Unknown]
  - Vomiting [Unknown]
  - Dizziness [Unknown]
  - Diplopia [Unknown]
  - Disturbance in attention [Recovered/Resolved]
  - Head injury [Unknown]
  - Fall [Unknown]
